FAERS Safety Report 12639599 (Version 1)
Quarter: 2016Q3

REPORT INFORMATION
  Report Type: Other
  Country: AR (occurrence: AR)
  Receive Date: 20160810
  Receipt Date: 20160810
  Transmission Date: 20161109
  Serious: Yes (Hospitalization)
  Sender: FDA-Public Use
  Company Number: AR-LUPIN PHARMACEUTICALS INC.-2016-03417

PATIENT
  Age: 22 Year
  Sex: Male

DRUGS (5)
  1. PHENYTOIN SODIUM. [Suspect]
     Active Substance: PHENYTOIN SODIUM
     Indication: BRAIN ABSCESS
     Route: 065
  2. COLISTIN [Suspect]
     Active Substance: COLISTIN
     Indication: BRAIN ABSCESS
     Route: 065
  3. VANCOMYCIN [Suspect]
     Active Substance: VANCOMYCIN
     Indication: BRAIN ABSCESS
     Route: 065
  4. MEROPENEM. [Suspect]
     Active Substance: MEROPENEM
     Indication: BRAIN ABSCESS
     Route: 065
  5. COLISTIN [Suspect]
     Active Substance: COLISTIN
     Indication: BRAIN ABSCESS
     Route: 065

REACTIONS (2)
  - Obliterative bronchiolitis [Recovered/Resolved with Sequelae]
  - Stevens-Johnson syndrome [Recovered/Resolved with Sequelae]
